FAERS Safety Report 22366503 (Version 1)
Quarter: 2023Q2

REPORT INFORMATION
  Report Type: Spontaneous
  Country: US (occurrence: None)
  Receive Date: 20230524
  Receipt Date: 20230524
  Transmission Date: 20230722
  Serious: Yes (Other)
  Sender: FDA-Public Use
  Company Number: None

PATIENT
  Age: 82 Year
  Sex: Female
  Weight: 87.3 kg

DRUGS (12)
  1. JARDIANCE [Suspect]
     Active Substance: EMPAGLIFLOZIN
     Indication: Hypertension
     Route: 048
     Dates: start: 20230130, end: 20230430
  2. JARDIANCE [Suspect]
     Active Substance: EMPAGLIFLOZIN
     Indication: Diabetes mellitus
  3. MESALAMINE [Concomitant]
     Active Substance: MESALAMINE
  4. ELIQUIS [Concomitant]
     Active Substance: APIXABAN
  5. DOFETILIDE [Concomitant]
     Active Substance: DOFETILIDE
  6. CARVEDILOL [Concomitant]
     Active Substance: CARVEDILOL
  7. ATORVASTATIN [Concomitant]
     Active Substance: ATORVASTATIN
  8. AMLODIPINE [Concomitant]
     Active Substance: AMLODIPINE BESYLATE
  9. LANSOPRAZOLE [Concomitant]
     Active Substance: LANSOPRAZOLE
  10. ENALAPRIL [Concomitant]
     Active Substance: ENALAPRIL
  11. FUROSEMIDE [Concomitant]
     Active Substance: FUROSEMIDE
  12. VITAMIN D3 [Concomitant]
     Active Substance: CHOLECALCIFEROL

REACTIONS (6)
  - Pruritus genital [None]
  - Genital odour [None]
  - Diarrhoea [None]
  - Muscle spasms [None]
  - Cold sweat [None]
  - Blood pressure increased [None]

NARRATIVE: CASE EVENT DATE: 20230330
